FAERS Safety Report 12393591 (Version 1)
Quarter: 2016Q2

REPORT INFORMATION
  Report Type: Spontaneous
  Country: US (occurrence: None)
  Receive Date: 20160520
  Receipt Date: 20160520
  Transmission Date: 20160815
  Serious: No
  Sender: FDA-Public Use
  Company Number: None

PATIENT
  Sex: Female

DRUGS (1)
  1. HARVONI [Suspect]
     Active Substance: LEDIPASVIR\SOFOSBUVIR
     Indication: HEPATITIS VIRAL
     Dosage: 90/400 MG DAILY PO
     Route: 048
     Dates: start: 20160406

REACTIONS (4)
  - Blepharospasm [None]
  - Photopsia [None]
  - Fatigue [None]
  - Headache [None]
